FAERS Safety Report 15245079 (Version 2)
Quarter: 2018Q4

REPORT INFORMATION
  Report Type: Spontaneous
  Country: US (occurrence: US)
  Receive Date: 20180806
  Receipt Date: 20181012
  Transmission Date: 20190204
  Serious: Yes (Life-Threatening, Hospitalization, Other)
  Sender: FDA-Public Use
  Company Number: US-GILEAD-2018-0351550

PATIENT
  Age: 56 Year
  Sex: Male

DRUGS (1)
  1. AXICABTAGENE CILOLEUCEL [Suspect]
     Active Substance: AXICABTAGENE CILOLEUCEL
     Indication: DIFFUSE LARGE B-CELL LYMPHOMA
     Dosage: SINGLE INTRAVENOUS
     Route: 042
     Dates: start: 20180717, end: 20180717

REACTIONS (5)
  - Brain oedema [Unknown]
  - Neurotoxicity [Unknown]
  - Pyrexia [Recovered/Resolved]
  - Cytokine release syndrome [Recovered/Resolved]
  - Status epilepticus [Unknown]

NARRATIVE: CASE EVENT DATE: 20180718
